FAERS Safety Report 19430701 (Version 1)
Quarter: 2021Q2

REPORT INFORMATION
  Report Type: Spontaneous
  Country: US (occurrence: US)
  Receive Date: 20210618
  Receipt Date: 20210618
  Transmission Date: 20210717
  Serious: No
  Sender: FDA-Public Use
  Company Number: US-ORGANON-O2106USA001148

PATIENT
  Age: 36 Year
  Sex: Female
  Weight: 78.02 kg

DRUGS (2)
  1. NEXPLANON [Suspect]
     Active Substance: ETONOGESTREL
     Dosage: 1 ROD, 68 MG, ONCE, LEFT ARM
     Route: 059
     Dates: start: 2015
  2. NEXPLANON [Suspect]
     Active Substance: ETONOGESTREL
     Dosage: 1 ROD, 68 MG, ONCE, RIGHT ARM
     Route: 059
     Dates: start: 201801

REACTIONS (8)
  - Complication associated with device [Recovered/Resolved]
  - Device use issue [Unknown]
  - No adverse event [Unknown]
  - Complication associated with device [Not Recovered/Not Resolved]
  - Overdose [Unknown]
  - Incorrect product administration duration [Unknown]
  - Incorrect product administration duration [Unknown]
  - Device placement issue [Not Recovered/Not Resolved]

NARRATIVE: CASE EVENT DATE: 2018
